FAERS Safety Report 25637592 (Version 1)
Quarter: 2025Q3

REPORT INFORMATION
  Report Type: Spontaneous
  Country: US (occurrence: US)
  Receive Date: 20250804
  Receipt Date: 20250804
  Transmission Date: 20251020
  Serious: Yes (Other)
  Sender: DR REDDYS
  Company Number: US-DRL-USA-USA/2025/07/011658

PATIENT
  Age: 8 Decade
  Sex: Female
  Weight: 69.9 kg

DRUGS (16)
  1. APREMILAST [Suspect]
     Active Substance: APREMILAST
     Indication: Psoriasis
  2. APREMILAST [Suspect]
     Active Substance: APREMILAST
     Indication: Psoriatic arthropathy
  3. RISANKIZUMAB [Concomitant]
     Active Substance: RISANKIZUMAB
     Indication: Psoriasis
  4. RISANKIZUMAB [Concomitant]
     Active Substance: RISANKIZUMAB
     Indication: Psoriatic arthropathy
  5. SECUKINUMAB [Concomitant]
     Active Substance: SECUKINUMAB
     Indication: Psoriasis
  6. SECUKINUMAB [Concomitant]
     Active Substance: SECUKINUMAB
     Indication: Psoriatic arthropathy
  7. ADALIMUMAB [Concomitant]
     Active Substance: ADALIMUMAB
     Indication: Psoriasis
  8. ADALIMUMAB [Concomitant]
     Active Substance: ADALIMUMAB
     Indication: Psoriatic arthropathy
  9. TILDRAKIZUMAB [Concomitant]
     Active Substance: TILDRAKIZUMAB
     Indication: Psoriasis
  10. TILDRAKIZUMAB [Concomitant]
     Active Substance: TILDRAKIZUMAB
     Indication: Psoriatic arthropathy
  11. METHOTREXATE [Concomitant]
     Active Substance: METHOTREXATE
     Indication: Psoriasis
  12. METHOTREXATE [Concomitant]
     Active Substance: METHOTREXATE
     Indication: Psoriatic arthropathy
  13. IXEKIZUMAB [Concomitant]
     Active Substance: IXEKIZUMAB
     Indication: Psoriasis
  14. IXEKIZUMAB [Concomitant]
     Active Substance: IXEKIZUMAB
     Indication: Psoriatic arthropathy
  15. PREDNISONE [Concomitant]
     Active Substance: PREDNISONE
     Indication: Psoriasis
  16. PREDNISONE [Concomitant]
     Active Substance: PREDNISONE
     Indication: Psoriatic arthropathy

REACTIONS (2)
  - Treatment failure [Unknown]
  - Adverse event [Unknown]
